FAERS Safety Report 22137505 (Version 1)
Quarter: 2023Q1

REPORT INFORMATION
  Report Type: Spontaneous
  Country: US (occurrence: US)
  Receive Date: 20230325
  Receipt Date: 20230325
  Transmission Date: 20230418
  Serious: Yes (Hospitalization)
  Sender: FDA-Public Use
  Company Number: US-NPI-000009

PATIENT
  Age: 3 Week
  Sex: Male

DRUGS (1)
  1. CALCIUM GLUCONATE [Suspect]
     Active Substance: CALCIUM GLUCONATE
     Indication: Hypocalcaemia
     Route: 041

REACTIONS (2)
  - Fat necrosis [Unknown]
  - Cutaneous calcification [Recovered/Resolved]
